FAERS Safety Report 5000798-8 (Version None)
Quarter: 2006Q2

REPORT INFORMATION
  Report Type: 
  Country: None (occurrence: None)
  Receive Date: 20060512
  Receipt Date: 20050915
  Transmission Date: 20061013
  Serious: Yes (Hospitalization, Disabling)
  Sender: FDA-Public Use
  Company Number: US-MERCK-0509USA02444

PATIENT
  Age: 68 Year
  Sex: Female
  Weight: 74 kg

DRUGS (6)
  1. VIOXX [Suspect]
     Indication: SCIATICA
     Route: 048
     Dates: start: 20011003, end: 20030613
  2. CALCIUM (UNSPECIFIED) [Concomitant]
     Route: 048
  3. VITAMINS (UNSPECIFIED) [Concomitant]
     Route: 065
  4. PREMARIN [Concomitant]
     Route: 048
  5. SYNTHROID [Concomitant]
     Route: 048
  6. VITAMIN E [Concomitant]
     Route: 048

REACTIONS (18)
  - ASTHENIA [None]
  - BRADYCARDIA [None]
  - CEREBRAL ISCHAEMIA [None]
  - CEREBROVASCULAR ACCIDENT [None]
  - DEPRESSION [None]
  - FATIGUE [None]
  - HYPERTENSION [None]
  - HYPONATRAEMIA [None]
  - LABILE HYPERTENSION [None]
  - LACUNAR INFARCTION [None]
  - MENOPAUSE [None]
  - MITRAL VALVE INCOMPETENCE [None]
  - OBESITY [None]
  - ORTHOSTATIC HYPOTENSION [None]
  - PHARYNGOLARYNGEAL PAIN [None]
  - TRICUSPID VALVE INCOMPETENCE [None]
  - URINARY TRACT INFECTION [None]
  - VENTRICULAR HYPERTROPHY [None]
